FAERS Safety Report 5025515-7 (Version None)
Quarter: 2006Q2

REPORT INFORMATION
  Report Type: 
  Country: None (occurrence: None)
  Receive Date: 20060607
  Receipt Date: 20060526
  Transmission Date: 20061013
  Serious: No
  Sender: FDA-Public Use
  Company Number: IE-2006-013058

PATIENT
  Sex: Female

DRUGS (3)
  1. FLUDARA [Suspect]
     Indication: NON-HODGKIN'S LYMPHOMA
     Dosage: 4 COURSES
  2. CYCLOPHOSPHAMIDE [Suspect]
     Indication: NON-HODGKIN'S LYMPHOMA RECURRENT
     Dosage: 4 COURSES
  3. RITUXIMAB [Concomitant]

REACTIONS (2)
  - BONE MARROW FAILURE [None]
  - MYELODYSPLASTIC SYNDROME [None]
